FAERS Safety Report 16761794 (Version 1)
Quarter: 2019Q3

REPORT INFORMATION
  Report Type: Spontaneous
  Country: US (occurrence: US)
  Receive Date: 20190830
  Receipt Date: 20190830
  Transmission Date: 20191005
  Serious: No
  Sender: FDA-Public Use
  Company Number: US-SA-2019SA237743

PATIENT
  Sex: Male

DRUGS (5)
  1. TESTOSTERONE. [Concomitant]
     Active Substance: TESTOSTERONE
  2. ZETIA [Concomitant]
     Active Substance: EZETIMIBE
  3. CYCLOBENZAPRINE. [Concomitant]
     Active Substance: CYCLOBENZAPRINE
  4. PRALUENT [Suspect]
     Active Substance: ALIROCUMAB
     Indication: PRODUCT PRESCRIBING ERROR
     Dosage: 75 MG, QOW
     Route: 058
  5. TRAZODONE [Concomitant]
     Active Substance: TRAZODONE HYDROCHLORIDE

REACTIONS (1)
  - Product use issue [Unknown]
